FAERS Safety Report 12058638 (Version 1)
Quarter: 2016Q1

REPORT INFORMATION
  Report Type: Spontaneous
  Country: US (occurrence: None)
  Receive Date: 20160208
  Receipt Date: 20160208
  Transmission Date: 20160526
  Serious: Yes (Hospitalization)
  Sender: FDA-Public Use
  Company Number: None

PATIENT
  Age: 64 Year
  Sex: Female

DRUGS (18)
  1. OXYCODONE [Concomitant]
     Active Substance: OXYCODONE
  2. MULTIVITAMIN [Concomitant]
     Active Substance: VITAMINS
  3. METOPROLOL. [Concomitant]
     Active Substance: METOPROLOL
  4. FUROSEMIDE. [Concomitant]
     Active Substance: FUROSEMIDE
  5. VITAMIN C [Concomitant]
     Active Substance: ASCORBIC ACID
  6. CALCIUM [Concomitant]
     Active Substance: CALCIUM
  7. ALDACTONE [Concomitant]
     Active Substance: SPIRONOLACTONE
  8. SEREVENT DISKUS [Concomitant]
     Active Substance: SALMETEROL XINAFOATE
  9. VITAMIN D [Concomitant]
     Active Substance: CHOLECALCIFEROL
  10. SINGULAIR [Concomitant]
     Active Substance: MONTELUKAST SODIUM
  11. TRICOR [Concomitant]
     Active Substance: FENOFIBRATE
  12. ORENCIA [Suspect]
     Active Substance: ABATACEPT
     Indication: RHEUMATOID ARTHRITIS
     Route: 058
     Dates: start: 20150717
  13. OMEPRAZOLE. [Concomitant]
     Active Substance: OMEPRAZOLE
  14. OXYCONTIN [Concomitant]
     Active Substance: OXYCODONE HYDROCHLORIDE
  15. MSM [Concomitant]
     Active Substance: DIMETHYL SULFONE
  16. ELIQUIS [Concomitant]
     Active Substance: APIXABAN
  17. ATROVENT [Concomitant]
     Active Substance: IPRATROPIUM BROMIDE
  18. FLOVENT [Concomitant]
     Active Substance: FLUTICASONE PROPIONATE

REACTIONS (1)
  - Renal failure [None]

NARRATIVE: CASE EVENT DATE: 201601
